FAERS Safety Report 10028559 (Version 1)
Quarter: 2014Q1

REPORT INFORMATION
  Report Type: Spontaneous
  Country: US (occurrence: US)
  Receive Date: 20140321
  Receipt Date: 20140321
  Transmission Date: 20141002
  Serious: No
  Sender: FDA-Public Use
  Company Number: US-PFIZER INC-2014081486

PATIENT
  Age: 15 Year
  Sex: Male
  Weight: 64.4 kg

DRUGS (2)
  1. ADVIL PM [Suspect]
     Dosage: 600 MG, UNK
     Dates: start: 20140319
  2. ADVIL [Suspect]
     Indication: BACK PAIN
     Dosage: UNK

REACTIONS (2)
  - Wrong drug administered [Unknown]
  - Somnolence [Unknown]
